FAERS Safety Report 9474109 (Version 2)
Quarter: 2013Q3

REPORT INFORMATION
  Report Type: Spontaneous
  Country: FR (occurrence: FR)
  Receive Date: 20130823
  Receipt Date: 20130911
  Transmission Date: 20140515
  Serious: Yes (Life-Threatening, Hospitalization)
  Sender: FDA-Public Use
  Company Number: FR-ALLERGAN-1312792US

PATIENT
  Age: 72 Year
  Sex: Female

DRUGS (9)
  1. TROSPIUM CHLORIDE UNK [Suspect]
     Indication: URINARY INCONTINENCE
     Dosage: 20 MG, UNKNOWN
     Route: 048
  2. DEPAKOTE [Concomitant]
     Indication: BIPOLAR DISORDER
     Dosage: UNK
     Route: 048
  3. ZYPREXA [Concomitant]
     Indication: BIPOLAR DISORDER
     Dosage: UNK
     Route: 048
  4. LUDIOMIL                           /00331902/ [Concomitant]
     Indication: DEPRESSION
     Dosage: UNK
     Route: 048
  5. KARDEGIC [Concomitant]
     Indication: VASCULAR DEMENTIA
     Dosage: UNK
     Route: 048
  6. INEXIUM [Concomitant]
     Indication: GASTROOESOPHAGEAL REFLUX DISEASE
     Dosage: UNK
     Route: 048
  7. COZAAR [Concomitant]
     Indication: HYPERTENSION
     Dosage: UNK
     Route: 048
  8. PREVISCAN                          /00789001/ [Concomitant]
     Indication: PHLEBITIS
     Dosage: UNK
     Route: 048
  9. DOLIPRANE [Concomitant]
     Indication: PAIN
     Dosage: UNK
     Route: 048

REACTIONS (5)
  - Shock haemorrhagic [Recovered/Resolved with Sequelae]
  - Anaemia [Not Recovered/Not Resolved]
  - Haematemesis [Recovered/Resolved]
  - International normalised ratio increased [Recovered/Resolved]
  - Oesophageal ulcer [Recovered/Resolved with Sequelae]
